FAERS Safety Report 7251292-5 (Version None)
Quarter: 2011Q1

REPORT INFORMATION
  Report Type: 
  Country: None (occurrence: None)
  Receive Date: 20110113
  Receipt Date: 20100930
  Transmission Date: 20110831
  Serious: Yes (Hospitalization)
  Sender: FDA-Public Use
  Company Number: 2010026565

PATIENT
  Sex: Female

DRUGS (4)
  1. CYCLOSPORINE [Concomitant]
  2. RITUXIN (RITUXIMAB) [Concomitant]
  3. SOLU-MEDROL [Concomitant]
  4. HIZENTRA [Suspect]
     Indication: IMMUNODEFICIENCY
     Dosage: (10 G 1X/WEEK, 10 G WEEKLY (TUESDAYS) IN ABDOMEN SUBCUTANEOUS)
     Route: 058
     Dates: start: 20100913, end: 20100913

REACTIONS (10)
  - Q FEVER [None]
  - FUNGAL INFECTION [None]
  - BACK PAIN [None]
  - PRODUCT QUALITY ISSUE [None]
  - ARTHRALGIA [None]
  - ABDOMINAL DISCOMFORT [None]
  - PYREXIA [None]
  - WHITE BLOOD CELL COUNT DECREASED [None]
  - PLATELET COUNT DECREASED [None]
  - BONE MARROW DISORDER [None]
